FAERS Safety Report 6961683-5 (Version None)
Quarter: 2010Q3

REPORT INFORMATION
  Report Type: 
  Country: None (occurrence: None)
  Receive Date: 20100901
  Receipt Date: 20100826
  Transmission Date: 20110219
  Serious: Yes (Other)
  Sender: FDA-Public Use
  Company Number: GB-AMGEN-QUU434910

PATIENT
  Sex: Female

DRUGS (9)
  1. ENBREL [Suspect]
     Indication: PRODUCT USED FOR UNKNOWN INDICATION
     Dosage: 50MG, FREQUENCY UNKNOWN
     Dates: start: 20100824
  2. AZATHIOPRINE [Concomitant]
     Dosage: UNKNOWN
  3. CODEINE PHOSPHATE/PARACETAMOL [Concomitant]
     Dosage: UNKNOWN
  4. LEVOTHYROXINE [Concomitant]
     Dosage: UNKNOWN
  5. AMILORIDE HYDROCHLORIDE/FUROSEMIDE [Concomitant]
     Dosage: UNKNOWN
  6. REGULAR INSULIN [Concomitant]
     Dosage: UNKNOWN
  7. METFORMIN [Concomitant]
     Dosage: UNKNOWN
  8. PREDNISOLONE [Concomitant]
     Dosage: UNKNOWN
  9. NAPROXEN [Concomitant]
     Dosage: UNKNOWN

REACTIONS (4)
  - ANXIETY [None]
  - DEPRESSION [None]
  - FEELING HOT [None]
  - NERVOUSNESS [None]
